FAERS Safety Report 9140818 (Version 2)
Quarter: 2013Q2

REPORT INFORMATION
  Report Type: Spontaneous
  Country: US (occurrence: US)
  Receive Date: 20130305
  Receipt Date: 20130409
  Transmission Date: 20140414
  Serious: Yes (Life-Threatening)
  Sender: FDA-Public Use
  Company Number: US-009507513-1303USA000467

PATIENT
  Age: 74 Year
  Sex: Male
  Weight: 68.27 kg

DRUGS (5)
  1. JANUVIA [Suspect]
     Indication: TYPE 2 DIABETES MELLITUS
     Dosage: 100 MG, QD
     Route: 048
     Dates: start: 201109
  2. METFORMIN [Concomitant]
  3. LEVEMIR [Concomitant]
  4. LOSARTAN POTASSIUM [Concomitant]
  5. STATIN (UNSPECIFIED) [Concomitant]

REACTIONS (3)
  - Pancreatic carcinoma [Not Recovered/Not Resolved]
  - Blood glucose decreased [Not Recovered/Not Resolved]
  - Weight decreased [Unknown]
